FAERS Safety Report 5868605-9 (Version None)
Quarter: 2008Q3

REPORT INFORMATION
  Report Type: 
  Country: None (occurrence: None)
  Receive Date: 20080903
  Receipt Date: 20080822
  Transmission Date: 20090109
  Serious: Yes (Death, Congenital Anomaly)
  Sender: FDA-Public Use
  Company Number: FR-NOVOPROD-278806

PATIENT
  Age: 31 Week
  Sex: Female
  Weight: 2.01 kg

DRUGS (2)
  1. ACTRAPID [Suspect]
     Indication: MATERNAL DRUGS AFFECTING FOETUS
     Route: 064
  2. INSULATARD FLEXPEN [Suspect]
     Indication: MATERNAL DRUGS AFFECTING FOETUS
     Route: 064

REACTIONS (2)
  - ATRIAL SEPTAL DEFECT [None]
  - CONGENITAL DIAPHRAGMATIC HERNIA [None]
